FAERS Safety Report 7055686-2 (Version None)
Quarter: 2010Q4

REPORT INFORMATION
  Report Type: 
  Country: None (occurrence: None)
  Receive Date: 20101020
  Receipt Date: 20101020
  Transmission Date: 20110411
  Serious: Yes (Hospitalization)
  Sender: FDA-Public Use
  Company Number: None

PATIENT
  Age: 70 Year
  Sex: Male
  Weight: 85.73 kg

DRUGS (1)
  1. PRAZOSIN HCL [Suspect]
     Indication: NIGHTMARE
     Dosage: 2 MG AT BEDTIME PO
     Route: 048
     Dates: start: 20100906, end: 20100908

REACTIONS (1)
  - HYPOTENSION [None]
